FAERS Safety Report 6856344-7 (Version None)
Quarter: 2010Q3

REPORT INFORMATION
  Report Type: 
  Country: None (occurrence: None)
  Receive Date: 20100715
  Receipt Date: 20100715
  Transmission Date: 20110219
  Serious: Yes (Disabling)
  Sender: FDA-Public Use
  Company Number: None

PATIENT
  Age: 61 Year
  Sex: Female
  Weight: 136.0791 kg

DRUGS (1)
  1. FLUNISOLIDE [Suspect]
     Indication: MULTIPLE ALLERGIES
     Dosage: 2 SPRAYS IN EACH NOSTRIL 2 TIMES A DAY NASAL
     Route: 045
     Dates: start: 20100713, end: 20100713

REACTIONS (4)
  - EYE PAIN [None]
  - LACRIMATION INCREASED [None]
  - NASAL DISCOMFORT [None]
  - PRODUCT SUBSTITUTION ISSUE [None]
